FAERS Safety Report 8052891-3 (Version None)
Quarter: 2011Q4

REPORT INFORMATION
  Report Type: 
  Country: None (occurrence: None)
  Receive Date: 20111228
  Receipt Date: 20111221
  Transmission Date: 20120403
  Serious: Yes (Death)
  Sender: FDA-Public Use
  Company Number: 2011030624

PATIENT

DRUGS (3)
  1. PLASMA [Concomitant]
  2. PROTHROMBIN COMPLEX CONCENTRATE (FACTOR II (PROTHROMBIN)) [Suspect]
     Indication: CARDIAC OPERATION
     Dosage: 3000 IU QD
  3. HAEMOCOMPLETTAN P (FIBRINOGEN CONCENTRATE (HUMAN)) [Suspect]
     Indication: CARDIAC OPERATION
     Dosage: 4 G QD

REACTIONS (4)
  - MULTI-ORGAN FAILURE [None]
  - POST PROCEDURAL MYOCARDIAL INFARCTION [None]
  - HAEMORRHAGE [None]
  - SYSTEMIC INFLAMMATORY RESPONSE SYNDROME [None]
